FAERS Safety Report 7057532-X (Version None)
Quarter: 2010Q4

REPORT INFORMATION
  Report Type: 
  Country: None (occurrence: None)
  Receive Date: 20101022
  Receipt Date: 20101019
  Transmission Date: 20110411
  Serious: Yes (Death, Other)
  Sender: FDA-Public Use
  Company Number: PHHY2010US66424

PATIENT
  Sex: Male
  Weight: 68 kg

DRUGS (2)
  1. EXJADE [Suspect]
     Dosage: 1500 MG QD
     Route: 048
     Dates: start: 20091101, end: 20100801
  2. ANTIHISTAMINICS [Concomitant]
     Dosage: UNK

REACTIONS (4)
  - ASTHENIA [None]
  - FATIGUE [None]
  - GASTROINTESTINAL INFECTION [None]
  - SEPSIS [None]
